FAERS Safety Report 6604739-9 (Version None)
Quarter: 2010Q1

REPORT INFORMATION
  Report Type: 
  Country: None (occurrence: None)
  Receive Date: 20100226
  Receipt Date: 20091120
  Transmission Date: 20100710
  Serious: No
  Sender: FDA-Public Use
  Company Number: US-BRISTOL-MYERS SQUIBB COMPANY-14866743

PATIENT
  Age: 70 Year
  Sex: Female

DRUGS (14)
  1. ONGLYZA [Suspect]
     Dates: start: 20091006, end: 20091013
  2. CLARITIN [Concomitant]
  3. XANAX [Concomitant]
  4. VITAMIN D [Concomitant]
  5. GLIPIZIDE [Concomitant]
  6. HYDROCHLOROTHIAZIDE [Concomitant]
  7. NAPROXEN [Concomitant]
  8. OMEPRAZOLE [Concomitant]
  9. BENAZEPRIL HYDROCHLORIDE [Concomitant]
  10. COMBIGAN [Concomitant]
  11. TRAVATAN [Concomitant]
  12. NITROGLYCERIN [Concomitant]
     Route: 060
  13. CELEXA [Concomitant]
  14. CRESTOR [Concomitant]

REACTIONS (1)
  - BLOOD GLUCOSE DECREASED [None]
